FAERS Safety Report 23601671 (Version 1)
Quarter: 2024Q1

REPORT INFORMATION
  Report Type: Spontaneous
  Country: RU (occurrence: RU)
  Receive Date: 20240306
  Receipt Date: 20240306
  Transmission Date: 20240410
  Serious: Yes (Hospitalization, Other)
  Sender: FDA-Public Use
  Company Number: RU-FreseniusKabi-FK202403323

PATIENT
  Age: 46 Year
  Sex: Female
  Weight: 78 kg

DRUGS (4)
  1. PROPOFOL [Suspect]
     Active Substance: PROPOFOL
     Indication: Induction and maintenance of anaesthesia
     Route: 042
     Dates: start: 20230622, end: 20230622
  2. ATROPINE [Suspect]
     Active Substance: ATROPINE\ATROPINE SULFATE
     Indication: Induction and maintenance of anaesthesia
     Dates: start: 20230622, end: 20230622
  3. FENTANYL [Suspect]
     Active Substance: FENTANYL\FENTANYL CITRATE
     Indication: Induction and maintenance of anaesthesia
     Route: 042
     Dates: start: 20230622, end: 20230622
  4. ROCURONIUM BROMIDE [Suspect]
     Active Substance: ROCURONIUM BROMIDE
     Indication: Induction and maintenance of anaesthesia
     Route: 042
     Dates: start: 20230622, end: 20230622

REACTIONS (1)
  - Anaphylactic reaction [Recovered/Resolved]

NARRATIVE: CASE EVENT DATE: 20230622
